FAERS Safety Report 5640966-5 (Version None)
Quarter: 2008Q1

REPORT INFORMATION
  Report Type: 
  Country: None (occurrence: None)
  Receive Date: 20080227
  Receipt Date: 20080219
  Transmission Date: 20080703
  Serious: Yes (Hospitalization)
  Sender: FDA-Public Use
  Company Number: US-TEVA-166256USA

PATIENT
  Sex: Male
  Weight: 55.388 kg

DRUGS (19)
  1. FLUOROURACIL [Suspect]
     Indication: COLORECTAL CANCER METASTATIC
     Route: 042
     Dates: start: 20070905, end: 20071029
  2. FLUOROURACIL [Suspect]
     Route: 042
     Dates: start: 20070905, end: 20071029
  3. FOLINIC ACID [Suspect]
     Indication: COLORECTAL CANCER METASTATIC
     Route: 041
     Dates: start: 20070905, end: 20071029
  4. AG-013, 736 [Suspect]
     Indication: COLORECTAL CANCER METASTATIC
     Route: 048
     Dates: start: 20070908, end: 20071111
  5. OXALIPLATIN [Suspect]
     Dates: start: 20070905, end: 20071029
  6. FAMOTIDINE [Concomitant]
     Route: 048
     Dates: start: 20070828
  7. BUDESONIDE [Concomitant]
     Route: 045
     Dates: start: 20020101
  8. SERETIDE [Concomitant]
     Dates: start: 20050101
  9. RETINOL [Concomitant]
     Route: 048
     Dates: start: 20020101
  10. CYANOCOBALAMIN [Concomitant]
     Route: 048
     Dates: start: 20020101
  11. CALCIUM WITH VITAMIN D [Concomitant]
     Route: 048
     Dates: start: 20020101
  12. TOCOPHEROL CONCENTRATE CAP [Concomitant]
     Route: 048
     Dates: start: 20020101
  13. PROCHLORPERAZINE EDISYLATE [Concomitant]
     Route: 048
     Dates: start: 20070901
  14. OXYCODONE HCL [Concomitant]
     Route: 048
     Dates: start: 20060101
  15. HYDROCODONE BITARTRATE [Concomitant]
     Route: 048
     Dates: start: 20070906
  16. HYDROXYZINE HYDROCHLORIDE [Concomitant]
     Route: 048
     Dates: start: 20060101
  17. CLONAZEPAM [Concomitant]
     Route: 048
     Dates: start: 20070401
  18. LOPERAMIDE HYDROCHLORIDE [Concomitant]
     Route: 048
     Dates: start: 20070925
  19. POTASSIUM CHLORIDE [Concomitant]
     Route: 048
     Dates: start: 20060801

REACTIONS (1)
  - HEMIPARESIS [None]
